FAERS Safety Report 16535220 (Version 2)
Quarter: 2019Q4

REPORT INFORMATION
  Report Type: Other
  Country: ES (occurrence: ES)
  Receive Date: 20190705
  Receipt Date: 20191115
  Transmission Date: 20200122
  Serious: Yes (Death)
  Sender: FDA-Public Use
  Company Number: ES-CELLTRION INC.-2019ES022179

PATIENT

DRUGS (13)
  1. RITUXIMAB (UNKNOWN) [Suspect]
     Active Substance: RITUXIMAB
     Dosage: UNK
     Route: 065
     Dates: start: 20190228, end: 20190323
  2. VINCRISTINE [Concomitant]
     Active Substance: VINCRISTINE
     Dosage: SECOND DOSE FROM 28/FEB/2019-27/MAR/2019
     Route: 065
     Dates: start: 20181016
  3. DOXORUBICIN [Concomitant]
     Active Substance: DOXORUBICIN
     Dosage: UNK, SECOND DOSE
     Route: 065
     Dates: start: 20190228, end: 20190327
  4. PREDNISONE. [Concomitant]
     Active Substance: PREDNISONE
     Dosage: SECOND DOSE FROM 28/FEB/2019-27/MAR/2019
     Route: 065
     Dates: start: 20181016
  5. VINCRISTINE [Concomitant]
     Active Substance: VINCRISTINE
     Dosage: UNK
     Route: 065
     Dates: start: 20190228, end: 20190327
  6. CISPLATIN. [Concomitant]
     Active Substance: CISPLATIN
     Dosage: UNK
     Route: 065
     Dates: start: 20190228, end: 20190327
  7. CYTARABINE. [Concomitant]
     Active Substance: CYTARABINE
     Dosage: UNK
     Route: 065
     Dates: start: 20190228, end: 20190327
  8. CYCLOPHOSPHAMIDE. [Concomitant]
     Active Substance: CYCLOPHOSPHAMIDE
     Dosage: UNK, SECOND DOSE
     Route: 065
     Dates: start: 20190228, end: 20190327
  9. DEXAMETHASONE. [Concomitant]
     Active Substance: DEXAMETHASONE
     Dosage: UNK
     Route: 065
     Dates: start: 20190228, end: 20190327
  10. CYCLOPHOSPHAMIDE. [Concomitant]
     Active Substance: CYCLOPHOSPHAMIDE
     Dosage: SECOND DOSE FROM 28/FEB/2019-27/MAR/2019
     Route: 065
     Dates: start: 20181016
  11. RITUXIMAB (UNKNOWN) [Suspect]
     Active Substance: RITUXIMAB
     Indication: DIFFUSE LARGE B-CELL LYMPHOMA
     Dosage: UNK
     Route: 065
     Dates: start: 20181016, end: 20190201
  12. PREDNISONE. [Concomitant]
     Active Substance: PREDNISONE
     Dosage: UNK, SECOND DOSE
     Route: 065
     Dates: start: 20190228, end: 20190327
  13. DOXORUBICIN [Concomitant]
     Active Substance: DOXORUBICIN
     Dosage: SECOND DOSE FROM 28/FEB/2019-27/MAR/2019
     Route: 065
     Dates: start: 20181016

REACTIONS (9)
  - Neutrophil count abnormal [Fatal]
  - Cachexia [Fatal]
  - Pyrexia [Fatal]
  - Haemoglobin abnormal [Fatal]
  - Death [Fatal]
  - Platelet disorder [Fatal]
  - Blood lactate dehydrogenase abnormal [Fatal]
  - White blood cell count abnormal [Fatal]
  - General physical health deterioration [Fatal]

NARRATIVE: CASE EVENT DATE: 20190527
